FAERS Safety Report 7302445-9 (Version None)
Quarter: 2011Q1

REPORT INFORMATION
  Report Type: 
  Country: None (occurrence: None)
  Receive Date: 20110218
  Receipt Date: 20110207
  Transmission Date: 20110831
  Serious: Yes (Other)
  Sender: FDA-Public Use
  Company Number: PHHY2010RU86629

PATIENT
  Sex: Female

DRUGS (2)
  1. TASIGNA [Suspect]
     Indication: CHRONIC MYELOID LEUKAEMIA
     Dosage: 800 MG, UNK
  2. TASIGNA [Suspect]
     Dosage: 400 MG, UNK

REACTIONS (2)
  - SLEEP DISORDER [None]
  - HEADACHE [None]
